FAERS Safety Report 7683687-X (Version None)
Quarter: 2011Q3

REPORT INFORMATION
  Report Type: 
  Country: None (occurrence: None)
  Receive Date: 20110815
  Receipt Date: 20110802
  Transmission Date: 20111222
  Serious: Yes (Hospitalization)
  Sender: FDA-Public Use
  Company Number: US-CELGENEUS-163-21880-11070469

PATIENT
  Sex: Female

DRUGS (17)
  1. LORAZEPAM [Concomitant]
     Dosage: .5 MILLIGRAM
     Route: 048
     Dates: start: 20110309
  2. NEXIUM [Concomitant]
     Dosage: 40 MILLIGRAM
     Route: 048
     Dates: start: 20091019
  3. PROVENTIL-HFA [Concomitant]
     Dosage: 90MCG, 2 PUFFS
     Route: 055
     Dates: start: 20101217
  4. SYMBICORT [Concomitant]
     Dosage: 160-4.5 MCG, 2 PUFFS
     Route: 055
     Dates: start: 20090213
  5. CALCIUM CARBONATE [Concomitant]
     Dosage: 1500 MILLIGRAM
     Route: 048
     Dates: start: 20091019
  6. FEXOFENADINE HCL [Concomitant]
     Dosage: 180 MILLIGRAM
     Route: 048
     Dates: start: 20090417
  7. SINGULAIR [Concomitant]
     Dosage: 10 MILLIGRAM
     Route: 048
     Dates: start: 20081203
  8. ATENOLOL [Concomitant]
     Dosage: 50 MILLIGRAM
     Route: 048
     Dates: start: 20090417
  9. OXYCODONE/ACETAMINOPHEN [Concomitant]
     Dosage: 5-325MG
     Route: 048
     Dates: start: 20110309
  10. WOMEN'S VITA PAK [Concomitant]
     Route: 048
     Dates: start: 20091019
  11. FLUTICASONE PROPIONATE [Concomitant]
     Dosage: 50 MICROGRAM
     Route: 045
     Dates: start: 20090417
  12. FUROSEMIDE [Concomitant]
     Dosage: 20 MILLIGRAM
     Route: 048
     Dates: start: 20110516
  13. EPIPEN [Concomitant]
     Dosage: 0.15MG/0.3ML
     Route: 065
     Dates: start: 20100923
  14. PROMETHAZINE HCL [Concomitant]
     Indication: NAUSEA
     Dosage: 25 MILLIGRAM
     Route: 048
     Dates: start: 20110420
  15. REVLIMID [Suspect]
     Dosage: 25 MILLIGRAM
     Route: 048
     Dates: start: 20110425, end: 20110508
  16. ASPIRIN [Concomitant]
     Dosage: 81 MILLIGRAM
     Route: 048
     Dates: start: 20110628
  17. DEXAMETHASONE [Concomitant]
     Dosage: 20 MILLIGRAM
     Route: 048
     Dates: start: 20110420

REACTIONS (1)
  - FEMUR FRACTURE [None]
